FAERS Safety Report 5007794-5 (Version None)
Quarter: 2006Q2

REPORT INFORMATION
  Report Type: 
  Country: None (occurrence: None)
  Receive Date: 20060522
  Receipt Date: 20060512
  Transmission Date: 20061013
  Serious: Yes (Hospitalization)
  Sender: FDA-Public Use
  Company Number: JP-JPN-A200601542

PATIENT
  Age: 35 Year
  Sex: Female

DRUGS (5)
  1. PAXIL [Suspect]
     Indication: DEPRESSION
     Dosage: 30MG PER DAY
     Route: 048
     Dates: end: 20060505
  2. SEROQUEL [Suspect]
     Route: 048
  3. AMOBAN [Concomitant]
     Route: 048
  4. ROHYPNOL [Concomitant]
     Route: 065
  5. DEPAS [Concomitant]
     Route: 048

REACTIONS (3)
  - BLOOD CREATINE PHOSPHOKINASE INCREASED [None]
  - RHABDOMYOLYSIS [None]
  - TREMOR [None]
